FAERS Safety Report 6993934-5 (Version None)
Quarter: 2010Q3

REPORT INFORMATION
  Report Type: 
  Country: None (occurrence: None)
  Receive Date: 20100917
  Receipt Date: 20100621
  Transmission Date: 20110219
  Serious: No
  Sender: FDA-Public Use
  Company Number: US-ASTRAZENECA-2010SE28950

PATIENT
  Age: 15577 Day
  Sex: Female
  Weight: 83.9 kg

DRUGS (2)
  1. SEROQUEL XR [Suspect]
     Route: 048
  2. SEROQUEL XR [Suspect]
     Route: 048
     Dates: start: 20100515, end: 20100619

REACTIONS (2)
  - DRUG DOSE OMISSION [None]
  - DYSKINESIA [None]
